FAERS Safety Report 22005749 (Version 1)
Quarter: 2023Q1

REPORT INFORMATION
  Report Type: Spontaneous
  Country: CN (occurrence: CN)
  Receive Date: 20230217
  Receipt Date: 20230217
  Transmission Date: 20230418
  Serious: Yes (Hospitalization)
  Sender: FDA-Public Use
  Company Number: CN-PFIZER INC-PV202300026091

PATIENT
  Age: 27 Year
  Sex: Male

DRUGS (1)
  1. PAXLOVID [Suspect]
     Active Substance: NIRMATRELVIR\RITONAVIR
     Indication: COVID-19
     Dosage: UNK, NIRMATRELVIR 300 MG + RITONAVIR 100 MG
     Route: 048
     Dates: start: 20220617

REACTIONS (2)
  - COVID-19 [Unknown]
  - Disease recurrence [Unknown]
